FAERS Safety Report 11144334 (Version 1)
Quarter: 2015Q2

REPORT INFORMATION
  Report Type: Spontaneous
  Country: None (occurrence: None)
  Receive Date: 20150526
  Receipt Date: 20150526
  Transmission Date: 20150821
  Serious: No
  Sender: FDA-Public Use
  Company Number: None

PATIENT
  Age: 47 Year
  Sex: Female
  Weight: 50.8 kg

DRUGS (5)
  1. LATUDA [Suspect]
     Active Substance: LURASIDONE HYDROCHLORIDE
     Indication: DEPRESSION
     Dosage: 1 PILL (20MG) ONCE DAILY TAKEN BY MOUTH
     Route: 048
  2. CLONOPIN [Concomitant]
     Active Substance: CLONAZEPAM
  3. LAMICTAL [Concomitant]
     Active Substance: LAMOTRIGINE
  4. LATUDA [Suspect]
     Active Substance: LURASIDONE HYDROCHLORIDE
     Indication: BIPOLAR I DISORDER
     Dosage: 1 PILL (20MG) ONCE DAILY TAKEN BY MOUTH
     Route: 048
  5. LITHIUM. [Concomitant]
     Active Substance: LITHIUM

REACTIONS (3)
  - Neck pain [None]
  - Heart rate increased [None]
  - Back pain [None]

NARRATIVE: CASE EVENT DATE: 20150518
